FAERS Safety Report 10997836 (Version 1)
Quarter: 2015Q2

REPORT INFORMATION
  Report Type: Spontaneous
  Country: US (occurrence: US)
  Receive Date: 20150408
  Receipt Date: 20150408
  Transmission Date: 20150821
  Serious: No
  Sender: FDA-Public Use
  Company Number: US-BANPHARM-20143178

PATIENT
  Age: 81 Year
  Sex: Female
  Weight: 70.29 kg

DRUGS (4)
  1. ADVIL [Suspect]
     Active Substance: IBUPROFEN
     Indication: PAIN
     Dosage: 1 DF, QHS,
     Route: 048
     Dates: start: 20141019, end: 20141019
  2. NAPROXEN SODIUM 220 MG [Suspect]
     Active Substance: NAPROXEN SODIUM
     Indication: PAIN
     Dosage: 1 DF, QD,
     Route: 048
     Dates: start: 20141019, end: 20141020
  3. GABAPENTIN. [Concomitant]
     Active Substance: GABAPENTIN
     Dates: start: 201409
  4. ANALGESICS [Concomitant]
     Active Substance: UNSPECIFIED INGREDIENT
     Dates: start: 20141016, end: 20141016

REACTIONS (2)
  - Local swelling [Recovering/Resolving]
  - Joint swelling [Recovering/Resolving]
